FAERS Safety Report 16803629 (Version 1)
Quarter: 2019Q3

REPORT INFORMATION
  Report Type: Spontaneous
  Country: CA (occurrence: CA)
  Receive Date: 20190913
  Receipt Date: 20190913
  Transmission Date: 20191005
  Serious: Yes (Other)
  Sender: FDA-Public Use
  Company Number: CA-ALK-ABELLO A/S-2019AA003093

PATIENT

DRUGS (12)
  1. TAE BULK 1324 (DRECHSLERA SOROKINIANA) [Suspect]
     Active Substance: COCHLIOBOLUS SATIVUS
     Indication: RHINITIS ALLERGIC
     Dosage: 0.05 MILLILITER VIAL 3DS
     Route: 058
  2. PENICILLIUM NOTATUM [Suspect]
     Active Substance: PENICILLIUM CHRYSOGENUM VAR. CHRYSOGENUM
     Indication: RHINITIS ALLERGIC
     Dosage: 0.05 MILLILITER VIAL 3DS
     Route: 058
  3. TAE BULK 413 (CANDIDA ALBICANS) [Suspect]
     Active Substance: CANDIDA ALBICANS
     Indication: RHINITIS ALLERGIC
     Dosage: 0.05 MILLILITER VIAL 3DS
     Route: 058
  4. TAE BULK 416 [Suspect]
     Active Substance: CLADOSPORIUM CLADOSPORIOIDES
     Indication: RHINITIS ALLERGIC
     Dosage: 0.05 MILLILITER VIAL 3DS
     Route: 058
  5. STAE BULK 225 [Suspect]
     Active Substance: PHLEUM PRATENSE POLLEN
     Indication: RHINITIS ALLERGIC
     Dosage: 0.05 MILLILITER VIAL 3DS
     Route: 058
  6. TAE BULK 1324 (DRECHSLERA SOROKINIANA) [Suspect]
     Active Substance: COCHLIOBOLUS SATIVUS
     Dosage: 0.05 MILLILITER VIAL 2DS
  7. TAE BULK 405 (ASPERGILLUS FUMIGATUS) [Suspect]
     Active Substance: ASPERGILLUS FUMIGATUS
     Indication: RHINITIS ALLERGIC
     Dosage: 0.05 MILLILITER VIAL 3DS
     Route: 058
  8. TAE BULK 416 [Suspect]
     Active Substance: CLADOSPORIUM CLADOSPORIOIDES
     Dosage: 0.05 MILLILITER VIAL 2DS
  9. STAE BULK 225 [Suspect]
     Active Substance: PHLEUM PRATENSE POLLEN
     Dosage: 0.05 MILLILITER VIAL 2DS
  10. TAE BULK 405 [Suspect]
     Active Substance: ASPERGILLUS FUMIGATUS
     Dosage: 0.05 MILLILITER VIAL 2DS
  11. TAE BULK 413 (CANDIDA ALBICANS) [Suspect]
     Active Substance: CANDIDA ALBICANS
     Dosage: 0.05 MILLILITER VIAL 2DS
  12. PENICILLIUM NOTATUM [Suspect]
     Active Substance: PENICILLIUM CHRYSOGENUM VAR. CHRYSOGENUM
     Dosage: 0.05 MILLILITER VIAL 2DS

REACTIONS (4)
  - Hyperhidrosis [Recovered/Resolved]
  - Dizziness [Recovered/Resolved]
  - Abdominal pain [Recovered/Resolved]
  - Pruritus generalised [Recovered/Resolved]

NARRATIVE: CASE EVENT DATE: 20180514
